FAERS Safety Report 5593034-5 (Version None)
Quarter: 2008Q1

REPORT INFORMATION
  Report Type: 
  Country: None (occurrence: None)
  Receive Date: 20080116
  Receipt Date: 20080110
  Transmission Date: 20080703
  Serious: Yes (Other)
  Sender: FDA-Public Use
  Company Number: DE-JNJFOC-20080102052

PATIENT
  Age: 87 Year
  Sex: Female

DRUGS (1)
  1. HALDOL [Suspect]
     Indication: SCHIZOPHRENIA
     Route: 048

REACTIONS (4)
  - ANOREXIA [None]
  - PARESIS [None]
  - RESTLESSNESS [None]
  - THERAPEUTIC PRODUCT INEFFECTIVE [None]
